FAERS Safety Report 12548519 (Version 1)
Quarter: 2016Q3

REPORT INFORMATION
  Report Type: Spontaneous
  Country: US (occurrence: None)
  Receive Date: 20160711
  Receipt Date: 20160711
  Transmission Date: 20161109
  Serious: No
  Sender: FDA-Public Use
  Company Number: None

PATIENT
  Sex: Female
  Weight: 113.85 kg

DRUGS (1)
  1. BUPRENORPHINE/NALOXONE 8.2 ? PURPLE PACHET [Suspect]
     Active Substance: BUPRENORPHINE\NALOXONE
     Indication: DRUG DEPENDENCE
     Dosage: 8.2 FILM QD ORALLY
     Route: 048
     Dates: start: 20160617, end: 20160620

REACTIONS (4)
  - Headache [None]
  - Nausea [None]
  - Fluid retention [None]
  - Product formulation issue [None]
